FAERS Safety Report 18389252 (Version 1)
Quarter: 2020Q4

REPORT INFORMATION
  Report Type: Spontaneous
  Country: DE (occurrence: DE)
  Receive Date: 20201015
  Receipt Date: 20201015
  Transmission Date: 20210114
  Serious: Yes (Other)
  Sender: FDA-Public Use
  Company Number: DE-009507513-2007DEU009720

PATIENT
  Age: 71 Year
  Sex: Male

DRUGS (4)
  1. ATOZET 10 MG/40 MG [Suspect]
     Active Substance: ATORVASTATIN CALCIUM\EZETIMIBE
     Indication: LOW DENSITY LIPOPROTEIN INCREASED
     Dosage: HALF A TABLET / DAY
     Route: 048
     Dates: start: 2020
  2. ASPIRIN. [Concomitant]
     Active Substance: ASPIRIN
     Dosage: 100 MG A DAY
  3. BELOC-ZOK [Concomitant]
     Active Substance: METOPROLOL SUCCINATE
     Dosage: UNK
  4. ATOZET 10 MG/40 MG [Suspect]
     Active Substance: ATORVASTATIN CALCIUM\EZETIMIBE
     Dosage: 10MG/40MG
     Route: 048
     Dates: start: 2020

REACTIONS (6)
  - Underdose [Unknown]
  - Lyme disease [Recovered/Resolved]
  - Wrong technique in product usage process [Unknown]
  - Rash [Recovered/Resolved]
  - Arthropod bite [Recovered/Resolved]
  - Liver function test increased [Recovered/Resolved]

NARRATIVE: CASE EVENT DATE: 2020
